FAERS Safety Report 9311782 (Version 2)
Quarter: 2013Q2

REPORT INFORMATION
  Report Type: Spontaneous
  Country: JP (occurrence: JP)
  Receive Date: 20130528
  Receipt Date: 20130624
  Transmission Date: 20140414
  Serious: Yes (Hospitalization, Other)
  Sender: FDA-Public Use
  Company Number: PHHY2013JP031341

PATIENT
  Age: 95 Year
  Sex: Male

DRUGS (18)
  1. RIVASTIGMIN [Suspect]
     Indication: DEMENTIA ALZHEIMER^S TYPE
     Dosage: 4.5 MG, ONCE A DAY
     Route: 062
     Dates: start: 20111109, end: 20111122
  2. RIVASTIGMIN [Suspect]
     Dosage: 9 MG, ONCE A DAY
     Route: 062
     Dates: start: 20111123
  3. RIVASTIGMIN [Suspect]
     Dosage: 13.5 MG, ONCE A DAY
     Route: 062
     Dates: end: 20120403
  4. RIVASTIGMIN [Suspect]
     Dosage: 18 MG, ONCE A DAY
     Route: 062
     Dates: start: 20120404
  5. PLETAAL [Concomitant]
  6. RENIVACE [Concomitant]
  7. BLOPRESS [Concomitant]
  8. SELARA [Concomitant]
  9. ATELEC [Concomitant]
  10. ARTIST [Concomitant]
  11. MAGLAX [Concomitant]
  12. SENNOSIDE [Concomitant]
  13. DIART [Concomitant]
  14. AVOLVE [Concomitant]
  15. TAKEPRON [Concomitant]
  16. ALLEGRA [Concomitant]
  17. TSUMURA BYAKKOKANINJINTO [Concomitant]
  18. TSUMURA CHIKUJO-UNTANTOO [Concomitant]

REACTIONS (5)
  - Adams-Stokes syndrome [Unknown]
  - Bradycardia [Unknown]
  - Atrioventricular block complete [Unknown]
  - Lumbar vertebral fracture [Unknown]
  - Inappropriate schedule of drug administration [Unknown]
